FAERS Safety Report 8062878-2 (Version None)
Quarter: 2012Q1

REPORT INFORMATION
  Report Type: 
  Country: None (occurrence: None)
  Receive Date: 20120123
  Receipt Date: 20120109
  Transmission Date: 20120608
  Serious: Yes (Disabling)
  Sender: FDA-Public Use
  Company Number: AU-MYLANLABS-2012S1000709

PATIENT
  Age: 73 Year
  Sex: Female

DRUGS (2)
  1. TEMAZEPAM [Suspect]
     Dosage: 40MG A DAY FOR 40 YEARS
     Route: 048
  2. TEMAZEPAM [Suspect]
     Dosage: 20MG ON ADMISSION
     Route: 048

REACTIONS (3)
  - CATATONIA [None]
  - AGITATION [None]
  - DRUG WITHDRAWAL SYNDROME [None]
